FAERS Safety Report 21386969 (Version 2)
Quarter: 2022Q4

REPORT INFORMATION
  Report Type: Spontaneous
  Country: DE (occurrence: DE)
  Receive Date: 20220928
  Receipt Date: 20221004
  Transmission Date: 20230113
  Serious: Yes (Hospitalization, Other)
  Sender: FDA-Public Use
  Company Number: DE-ADRED-08095-01

PATIENT
  Age: 58 Year
  Sex: Male
  Weight: 115 kg

DRUGS (10)
  1. PANTOPRAZOLE [Suspect]
     Active Substance: PANTOPRAZOLE
     Dosage: 20 MG, 1X/DAY
     Route: 048
  2. SPIRONOLACTONE [Suspect]
     Active Substance: SPIRONOLACTONE
     Dosage: 50 MG, 1X/DAY
     Route: 048
  3. EDOXABAN [Suspect]
     Active Substance: EDOXABAN
     Dosage: UNK
     Route: 048
  4. BEZAFIBRATE [Suspect]
     Active Substance: BEZAFIBRATE
     Dosage: 200 MG, 1X/DAY
     Route: 048
  5. METOPROLOL [Suspect]
     Active Substance: METOPROLOL
     Dosage: 95 MG, 2X/DAY
     Route: 048
  6. ALLOPURINOL [Suspect]
     Active Substance: ALLOPURINOL
     Dosage: 300 MG, 1X/DAY
     Route: 048
  7. CANDESARTAN [Concomitant]
     Active Substance: CANDESARTAN
     Dosage: 16 MG, 1X/DAY
     Route: 048
  8. BECLOMETHASONE\FORMOTEROL [Concomitant]
     Active Substance: BECLOMETHASONE\FORMOTEROL
     Dosage: 100/6 MICROGRAM, BID
     Route: 050
  9. DIGITOXIN [Concomitant]
     Active Substance: DIGITOXIN
     Dosage: 0.07 MILLIGRAM, QD
     Route: 048
  10. ATORVASTATIN [Concomitant]
     Active Substance: ATORVASTATIN
     Dosage: 60 MILLIGRAM, QD
     Route: 048

REACTIONS (6)
  - Thrombocytopenia [Unknown]
  - Oedema peripheral [Unknown]
  - Anaemia [Unknown]
  - Paraesthesia [Unknown]
  - Abdominal pain [Unknown]
  - Pain [Unknown]
